FAERS Safety Report 25423357 (Version 1)
Quarter: 2025Q2

REPORT INFORMATION
  Report Type: Report from Study
  Country: US (occurrence: US)
  Receive Date: 20250611
  Receipt Date: 20250611
  Transmission Date: 20250717
  Serious: Yes (Hospitalization, Other)
  Sender: EISAI
  Company Number: US-Eisai-EC-2025-190655

PATIENT
  Age: 72 Year
  Sex: Female
  Weight: 78.5 kg

DRUGS (9)
  1. LECANEMAB [Suspect]
     Active Substance: LECANEMAB
     Indication: Cognitive disorder
     Dates: start: 20241031, end: 20241226
  2. LOSARTAN [Concomitant]
     Active Substance: LOSARTAN
     Dates: start: 201304
  3. CITALOPRAM [Concomitant]
     Active Substance: CITALOPRAM
     Dates: start: 201603
  4. ATORVASTATIN [Concomitant]
     Active Substance: ATORVASTATIN
     Dates: start: 202302
  5. BUPROPION [Concomitant]
     Active Substance: BUPROPION
  6. BUPROPION [Concomitant]
     Active Substance: BUPROPION
  7. MIRABEGRON [Concomitant]
     Active Substance: MIRABEGRON
     Dates: start: 202309
  8. GALANTAMINE [Concomitant]
     Active Substance: GALANTAMINE
     Dates: start: 202405
  9. TRAZODONE [Concomitant]
     Active Substance: TRAZODONE HYDROCHLORIDE

REACTIONS (1)
  - Asthenia [Recovered/Resolved]

NARRATIVE: CASE EVENT DATE: 20241031
